FAERS Safety Report 18918832 (Version 1)
Quarter: 2021Q1

REPORT INFORMATION
  Report Type: Spontaneous
  Country: NP (occurrence: NP)
  Receive Date: 20210220
  Receipt Date: 20210220
  Transmission Date: 20210420
  Serious: Yes (Other)
  Sender: FDA-Public Use
  Company Number: NP-SUN PHARMACEUTICAL INDUSTRIES LTD-2020R1-253210

PATIENT
  Age: 45 Year
  Sex: Male

DRUGS (3)
  1. RELUB?DS [Suspect]
     Active Substance: CARBOXYMETHYLCELLULOSE SODIUM
     Indication: POSTOPERATIVE CARE
     Dosage: EIGHT TIMES A DAY
     Route: 065
  2. TOBA [Suspect]
     Active Substance: TOBRAMYCIN
     Indication: POSTOPERATIVE CARE
     Dosage: 0.3 PERCENT, QID
     Route: 047
  3. PREDMET (PREDNISOLONE ACETATE) [Suspect]
     Active Substance: PREDNISOLONE ACETATE
     Indication: POSTOPERATIVE CARE
     Dosage: 1 PERCENT, QID
     Route: 047

REACTIONS (2)
  - Corneal graft failure [Unknown]
  - Corneal epithelium defect [Unknown]
